FAERS Safety Report 8054174-4 (Version None)
Quarter: 2012Q1

REPORT INFORMATION
  Report Type: 
  Country: None (occurrence: None)
  Receive Date: 20120118
  Receipt Date: 20120113
  Transmission Date: 20120608
  Serious: Yes (Hospitalization, Other)
  Sender: FDA-Public Use
  Company Number: US-PFIZER INC-2012010985

PATIENT
  Sex: Female
  Weight: 61.224 kg

DRUGS (20)
  1. SIMVASTATIN [Concomitant]
     Indication: BLOOD CHOLESTEROL INCREASED
     Dosage: UNK, 1X/DAY
  2. POTASSIUM CHLORIDE [Concomitant]
     Dosage: UNK, 1X/DAY
  3. SPIRIVA [Concomitant]
     Dosage: UNK, 1X/DAY
  4. HYDROXYZINE [Concomitant]
     Dosage: UNK, 3X/DAY
  5. OMEPRAZOLE [Concomitant]
     Dosage: UNK, 1X/DAY
  6. LEXAPRO [Concomitant]
     Dosage: UNK
  7. BUMEX [Concomitant]
     Dosage: UNK, 2X/DAY
  8. ESTROGENS ESTERFIED/METHYLTESTOSTERONE [Concomitant]
     Dosage: UNK, 2X/DAY
  9. LEVOTHYROXINE [Concomitant]
     Indication: HYPERTHYROIDISM
     Dosage: UNK, 1X/DAY
  10. FLEXERIL [Concomitant]
     Dosage: UNK, 1X/DAY
  11. ACETAMINOPHEN [Concomitant]
     Dosage: UNK, AS NEEDED
  12. ALLOPURINOL [Concomitant]
     Dosage: UNK, 2X/DAY
  13. METOPROLOL [Concomitant]
     Dosage: UNK, 2X/DAY
  14. IRON [Concomitant]
     Dosage: UNK
  15. REVATIO [Suspect]
     Indication: PULMONARY ARTERIAL HYPERTENSION
     Dosage: UNK, 3X/DAY
     Route: 048
     Dates: start: 20111001, end: 20111228
  16. ADVAIR DISKUS 100/50 [Concomitant]
     Dosage: UNK, 2X/DAY
  17. WARFARIN [Concomitant]
     Dosage: UNK, 1X/DAY
  18. MELOXICAM [Concomitant]
     Dosage: UNK, 2X/DAY
  19. MYLANTA [Concomitant]
     Dosage: UNK
  20. SENOKOT [Concomitant]
     Dosage: UNK, 1X/DAY

REACTIONS (2)
  - DRUG INEFFECTIVE [None]
  - CARDIAC FAILURE [None]
